FAERS Safety Report 8692413 (Version 3)
Quarter: 2013Q4

REPORT INFORMATION
  Report Type: Spontaneous
  Country: US (occurrence: US)
  Receive Date: 20120730
  Receipt Date: 20131101
  Transmission Date: 20140711
  Serious: No
  Sender: FDA-Public Use
  Company Number: US-009507513-1207USA009499

PATIENT
  Age: 60 Year
  Sex: Female
  Weight: 135.15 kg

DRUGS (14)
  1. CLARITIN-D-24 [Suspect]
     Indication: INFLUENZA
     Dosage: 10 MG, QD
     Route: 048
     Dates: start: 20120617, end: 20120623
  2. CLARITIN-D-24 [Suspect]
     Indication: RESPIRATORY TRACT CONGESTION
  3. CLARITIN-D-24 [Suspect]
     Indication: RHINORRHOEA
  4. CLARITIN-D-24 [Suspect]
     Indication: COUGH
  5. PAXIL [Concomitant]
     Indication: DEPRESSION
     Dosage: 10 MG, UNKNOWN
  6. HYDROCODONE [Concomitant]
     Indication: SPINAL CORD INJURY
     Dosage: 500 MG, UNKNOWN
  7. ATENOLOL [Concomitant]
     Indication: HYPERTENSION
     Dosage: 25 MG, UNKNOWN
  8. CLONIDINE [Concomitant]
     Indication: HYPERTENSION
     Dosage: .01 MG, UNKNOWN
  9. LISINOPRIL [Concomitant]
     Indication: HYPERTENSION
     Dosage: 40 MG, UNKNOWN
  10. CRESTOR [Concomitant]
     Indication: HYPERTENSION
     Dosage: 20 MG, UNKNOWN
  11. LOVAZA [Concomitant]
     Indication: HYPERTENSION
     Dosage: 1000 MG, UNKNOWN
  12. ALLOPURINOL [Concomitant]
     Indication: NEPHROLITHIASIS
     Dosage: 300 MG, UNKNOWN
  13. LORAZEPAM [Concomitant]
     Indication: INSOMNIA
     Dosage: 1 MG, UNKNOWN
  14. TYLENOL [Concomitant]
     Indication: PAIN
     Dosage: 500 MG, UNKNOWN

REACTIONS (1)
  - Drug ineffective [Unknown]
